FAERS Safety Report 9791945 (Version 6)
Quarter: 2014Q2

REPORT INFORMATION
  Report Type: Report from Study
  Country: US (occurrence: US)
  Receive Date: 20140102
  Receipt Date: 20140603
  Transmission Date: 20141212
  Serious: Yes (Hospitalization, Other)
  Sender: FDA-Public Use
  Company Number: US-SA-2013SA134803

PATIENT
  Age: 68 Year
  Sex: Female
  Weight: 86.18 kg

DRUGS (25)
  1. AUBAGIO [Suspect]
     Indication: MULTIPLE SCLEROSIS
     Route: 048
     Dates: start: 20131209
  2. FASLODEX [Concomitant]
  3. PRILOSEC [Concomitant]
  4. VITAMIN D [Concomitant]
  5. TRAMADOL HYDROCHLORIDE [Concomitant]
     Indication: PAIN
     Dosage: STRENGTH: 37.5/325 MG, TAKE 1 TAB BY MOTH EVEY SIX HOURS AS NEEDED
  6. DILTIAZEM [Concomitant]
  7. CRANBERRY EXTRACT [Concomitant]
  8. ZOCOR [Concomitant]
  9. SINGULAIR [Concomitant]
  10. PROVIGIL [Concomitant]
     Dosage: TAKEN AS NEEDED UP TO TWICE A DAY
  11. PROPRANOLOL HYDROCHLORIDE [Concomitant]
  12. VENLAFAXINE HYDROCHLORIDE [Concomitant]
     Dosage: 150MG ONCE A DAY-PM OR 75MG 2X^S A DAY
  13. MAXAIR [Concomitant]
     Dosage: FORM: AUTOHALER, 2 PUFFS EVERY 4 TO 6 HRS(USES BEFORE EXERCISE ONLY)
  14. BUDESONIDE [Concomitant]
     Dosage: FORM: POWDER/INH
  15. ALENDRONATE SODIUM [Concomitant]
  16. SULFASALAZINE [Concomitant]
     Indication: CROHN^S DISEASE
     Dosage: STRENGTH: 500 MG
  17. CARBIDOPA/LEVODOPA [Concomitant]
     Dosage: 25/100 TB MYLAN TAKE ONE TABLET 3X^S A DAY
  18. TRYPSIN [Concomitant]
  19. CLINDAMYCIN PHOSPHATE [Concomitant]
     Route: 061
  20. OMEPRAZOLE [Concomitant]
  21. FOLIC ACID [Concomitant]
  22. PRO-AIR [Concomitant]
     Dosage: INHALATIONAL AEROSOL
  23. ANTIHISTAMINES [Concomitant]
     Dosage: 0.15% TWO SPRAYS IN EACH NOSTRIL 2X DAY (RARELY USE)
  24. DEXAMETHASONE [Concomitant]
     Route: 061
  25. ALENDRONATE SODIUM [Concomitant]
     Indication: BONE LOSS

REACTIONS (4)
  - Neoplasm malignant [Unknown]
  - Fall [Unknown]
  - Ankle fracture [Recovering/Resolving]
  - Feeling abnormal [Unknown]
